FAERS Safety Report 10143930 (Version 2)
Quarter: 2014Q2

REPORT INFORMATION
  Report Type: Spontaneous
  Country: US (occurrence: US)
  Receive Date: 20140430
  Receipt Date: 20140430
  Transmission Date: 20141212
  Serious: No
  Sender: FDA-Public Use
  Company Number: US-GILEAD-2014-0100388

PATIENT
  Sex: Male

DRUGS (3)
  1. SOVALDI [Suspect]
     Indication: HEPATITIS C
     Dosage: 400 MG, QD
     Route: 065
  2. SOVALDI [Suspect]
     Dosage: 400 MG, BID
     Route: 065
  3. RIBAVIRIN [Concomitant]

REACTIONS (1)
  - Overdose [Recovered/Resolved]
